FAERS Safety Report 15503471 (Version 1)
Quarter: 2018Q4

REPORT INFORMATION
  Report Type: Spontaneous
  Country: US (occurrence: US)
  Receive Date: 20181009
  Receipt Date: 20181009
  Transmission Date: 20190205
  Serious: Yes (Disabling)
  Sender: FDA-Public Use
  Company Number: None

PATIENT
  Age: 72 Year
  Sex: Male
  Weight: 79.65 kg

DRUGS (4)
  1. CENIPLTRUM [Concomitant]
  2. SPRYCEL [Suspect]
     Active Substance: DASATINIB
     Indication: CHRONIC MYELOID LEUKAEMIA
     Dosage: ?          QUANTITY:1 DF DOSAGE FORM;?
     Route: 048
     Dates: start: 20120901, end: 20180924
  3. GLEEVEC [Suspect]
     Active Substance: IMATINIB MESYLATE
  4. MULT VITAMIN [Concomitant]

REACTIONS (5)
  - Wheelchair user [None]
  - Asthenia [None]
  - Therapy change [None]
  - Fine motor skill dysfunction [None]
  - General physical health deterioration [None]

NARRATIVE: CASE EVENT DATE: 20181009
